FAERS Safety Report 5997140-2 (Version None)
Quarter: 2008Q4

REPORT INFORMATION
  Report Type: 
  Country: None (occurrence: None)
  Receive Date: 20081212
  Receipt Date: 20081128
  Transmission Date: 20090506
  Serious: Yes (Other)
  Sender: FDA-Public Use
  Company Number: US-AMGEN-KDL319024

PATIENT
  Sex: Female
  Weight: 69.5 kg

DRUGS (3)
  1. ENBREL [Suspect]
     Indication: PSORIATIC ARTHROPATHY
     Route: 058
     Dates: start: 20040202, end: 20081101
  2. HUMIRA [Concomitant]
     Dates: start: 20060207, end: 20060623
  3. ATARAX [Concomitant]

REACTIONS (6)
  - ABSCESS ORAL [None]
  - HYPOAESTHESIA [None]
  - LEUKODYSTROPHY [None]
  - LEUKOENCEPHALOPATHY [None]
  - MULTIPLE SCLEROSIS [None]
  - SARCOIDOSIS [None]
